FAERS Safety Report 5267240-3 (Version None)
Quarter: 2007Q1

REPORT INFORMATION
  Report Type: 
  Country: None (occurrence: None)
  Receive Date: 20070313
  Receipt Date: 20070227
  Transmission Date: 20070707
  Serious: Yes (Disabling, Other)
  Sender: FDA-Public Use
  Company Number: WAES 0702USA04406

PATIENT

DRUGS (2)
  1. TIMOPTIC-XE [Suspect]
     Dosage: OPHT
     Route: 047
  2. ALPHAGAN [Suspect]

REACTIONS (3)
  - AMNESIA [None]
  - OCULAR HYPERTENSION [None]
  - SENILE DEMENTIA [None]
